FAERS Safety Report 4640459-8 (Version None)
Quarter: 2005Q2

REPORT INFORMATION
  Report Type: 
  Country: None (occurrence: None)
  Receive Date: 20050419
  Receipt Date: 20050406
  Transmission Date: 20051028
  Serious: Yes (Other)
  Sender: FDA-Public Use
  Company Number: 2004225650US

PATIENT
  Age: 57 Year
  Sex: Female
  Weight: 2.4494 kg

DRUGS (3)
  1. PROVERA [Suspect]
     Indication: HORMONE REPLACEMENT THERAPY
     Dates: start: 19820101, end: 19950101
  2. CONJUGATED ESTROGENS [Suspect]
     Indication: HORMONE REPLACEMENT THERAPY
     Dates: start: 19820101, end: 19950101
  3. ASPIRIN [Concomitant]

REACTIONS (1)
  - BREAST CANCER [None]
